FAERS Safety Report 6035284-X (Version None)
Quarter: 2009Q1

REPORT INFORMATION
  Report Type: 
  Country: None (occurrence: None)
  Receive Date: 20090109
  Receipt Date: 20090105
  Transmission Date: 20090719
  Serious: Yes (Death, Other)
  Sender: FDA-Public Use
  Company Number: CERZ-1000457

PATIENT
  Age: 3 Year
  Sex: Male
  Weight: 10.9 kg

DRUGS (1)
  1. CEREZYME [Suspect]
     Indication: GAUCHER'S DISEASE
     Dosage: 1200 U, Q2W, INTRAVENOUS
     Route: 042
     Dates: start: 20060301

REACTIONS (13)
  - CHILLS [None]
  - COGNITIVE DISORDER [None]
  - DISEASE PROGRESSION [None]
  - EPIGLOTTITIS [None]
  - GAUCHER'S DISEASE [None]
  - LARYNGOSPASM [None]
  - LISTLESS [None]
  - NEUROLOGICAL DECOMPENSATION [None]
  - PAIN [None]
  - PYREXIA [None]
  - RESPIRATORY ARREST [None]
  - TREMOR [None]
  - WEIGHT DECREASED [None]
